FAERS Safety Report 24554053 (Version 2)
Quarter: 2025Q1

REPORT INFORMATION
  Report Type: Report from Study
  Country: GB (occurrence: GB)
  Receive Date: 20241028
  Receipt Date: 20250102
  Transmission Date: 20250408
  Serious: Yes (Hospitalization)
  Sender: AMGEN
  Company Number: GB-Vifor (International) Inc.-VIT-2024-02704

PATIENT
  Age: 83 Year
  Sex: Male
  Weight: 68.4 kg

DRUGS (21)
  1. AVACOPAN [Suspect]
     Active Substance: AVACOPAN
     Indication: Anti-neutrophil cytoplasmic antibody positive vasculitis
     Dosage: TWICE DAILY (BD)
     Route: 048
     Dates: start: 20240118
  2. RITUXIMAB [Concomitant]
     Active Substance: RITUXIMAB
     Indication: Anti-neutrophil cytoplasmic antibody positive vasculitis
     Dosage: SINGLE IV INFUSION. COMPLETION OF PLANNED COURSE.
     Route: 040
     Dates: start: 20240122, end: 20240122
  3. RITUXIMAB [Concomitant]
     Active Substance: RITUXIMAB
     Route: 040
     Dates: start: 20240205, end: 20240205
  4. RITUXIMAB [Concomitant]
     Active Substance: RITUXIMAB
     Route: 040
     Dates: start: 20240806, end: 20240806
  5. METHYLPREDNISOLONE [Concomitant]
     Active Substance: METHYLPREDNISOLONE
     Indication: Anti-neutrophil cytoplasmic antibody positive vasculitis
     Dosage: TWO WEEKS APART. COMPLETION OF PLANNED COURSE
     Route: 040
     Dates: start: 20240122, end: 20240205
  6. PREDNISOLONE [Concomitant]
     Active Substance: PREDNISOLONE
     Indication: Anti-neutrophil cytoplasmic antibody positive vasculitis
     Dosage: COMPLETION OF PLANNED COURSE
     Route: 048
     Dates: start: 20231229, end: 20240101
  7. PREDNISOLONE [Concomitant]
     Active Substance: PREDNISOLONE
     Dosage: COMPLETION OF PLANNED COURSE
     Route: 048
     Dates: start: 20240102, end: 20240106
  8. PREDNISOLONE [Concomitant]
     Active Substance: PREDNISOLONE
     Dosage: COMPLETION OF PLANNED COURSE
     Route: 048
     Dates: start: 20240107, end: 20240201
  9. COTRIMOXAZOLE [Concomitant]
     Active Substance: SULFAMETHOXAZOLE\TRIMETHOPRIM
     Indication: Anti-neutrophil cytoplasmic antibody positive vasculitis
     Dosage: ONGOING
     Route: 048
     Dates: start: 20240118
  10. FAMOTIDINE [Concomitant]
     Active Substance: FAMOTIDINE
     Indication: Prophylaxis against gastrointestinal ulcer
     Dosage: ONGOING
     Route: 048
     Dates: start: 20240130
  11. BISOPROLOL [Concomitant]
     Active Substance: BISOPROLOL
     Indication: Hypertension
     Dosage: 5,MG,QD
     Route: 048
     Dates: start: 20211025, end: 20240301
  12. BISOPROLOL [Concomitant]
     Active Substance: BISOPROLOL
     Dosage: DOSAGE REDUCED, ONGOING
     Route: 048
     Dates: start: 20240302
  13. FINASTERIDE [Concomitant]
     Active Substance: FINASTERIDE
     Indication: Benign prostatic hyperplasia
     Dosage: ONGOING
     Route: 048
     Dates: start: 20220901
  14. CALCIUM CARBONATE [Concomitant]
     Active Substance: CALCIUM CARBONATE
     Indication: Prophylaxis
     Dosage: ONGOING
     Route: 048
     Dates: start: 20240129
  15. ASPIRIN [Concomitant]
     Active Substance: ASPIRIN
     Indication: Cardiovascular event prophylaxis
     Dosage: ONGOING
     Route: 048
     Dates: start: 20211005
  16. NITROGLYCERIN [Concomitant]
     Active Substance: NITROGLYCERIN
     Indication: Chest pain
     Route: 060
     Dates: start: 20231205
  17. ALBUTEROL [Concomitant]
     Active Substance: ALBUTEROL
     Indication: Chronic obstructive pulmonary disease
     Dates: start: 20220902
  18. TIOTROPIUM [Concomitant]
     Active Substance: TIOTROPIUM
     Indication: Chronic obstructive pulmonary disease
     Dosage: UNK, QD
     Dates: start: 20231218
  19. APIXABAN [Concomitant]
     Active Substance: APIXABAN
     Indication: Anticoagulant therapy
     Dosage: ONGOING
     Route: 048
     Dates: start: 20240129
  20. CARBOCYSTEINE [Concomitant]
     Active Substance: CARBOCYSTEINE
     Indication: Chronic obstructive pulmonary disease
     Dosage: ONGOING
     Route: 048
     Dates: start: 20240103
  21. ATORVASTATIN [Concomitant]
     Active Substance: ATORVASTATIN
     Indication: Cardiovascular event prophylaxis
     Dosage: ONGOING
     Route: 048
     Dates: start: 20211025

REACTIONS (3)
  - Hypokalaemia [Not Recovered/Not Resolved]
  - Dyspnoea [Not Recovered/Not Resolved]
  - Urinary tract infection [Not Recovered/Not Resolved]

NARRATIVE: CASE EVENT DATE: 20240319
